FAERS Safety Report 25492170 (Version 1)
Quarter: 2025Q2

REPORT INFORMATION
  Report Type: Spontaneous
  Country: FR (occurrence: FR)
  Receive Date: 20250630
  Receipt Date: 20250630
  Transmission Date: 20250717
  Serious: Yes (Other)
  Sender: SANDOZ
  Company Number: FR-SZ09-PHHY2014FR022248

PATIENT
  Age: 61 Year
  Sex: Male

DRUGS (2)
  1. FLUDARABINE [Suspect]
     Active Substance: FLUDARABINE PHOSPHATE
     Indication: Leukaemia
     Route: 065
  2. RITUXIMAB [Suspect]
     Active Substance: RITUXIMAB
     Indication: Leukaemia
     Route: 065

REACTIONS (2)
  - Drug-induced liver injury [Unknown]
  - Hepatic necrosis [Unknown]
